FAERS Safety Report 23292080 (Version 1)
Quarter: 2023Q4

REPORT INFORMATION
  Report Type: Spontaneous
  Country: CN (occurrence: CN)
  Receive Date: 20231213
  Receipt Date: 20231213
  Transmission Date: 20240109
  Serious: Yes (Other)
  Sender: FDA-Public Use
  Company Number: CN-BAYER-2023A175586

PATIENT
  Age: 58 Year
  Sex: Male
  Weight: 55 kg

DRUGS (1)
  1. STIVARGA [Suspect]
     Active Substance: REGORAFENIB
     Indication: Hepatocellular carcinoma
     Dosage: 120 MG, QD
     Route: 048
     Dates: start: 20231010, end: 20231110

REACTIONS (2)
  - Arthralgia [Recovering/Resolving]
  - Off label use [None]

NARRATIVE: CASE EVENT DATE: 20231010
